FAERS Safety Report 9788059 (Version 1)
Quarter: 2013Q4

REPORT INFORMATION
  Report Type: Spontaneous
  Country: US (occurrence: None)
  Receive Date: 20131227
  Receipt Date: 20131227
  Transmission Date: 20140711
  Serious: Yes (Hospitalization)
  Sender: FDA-Public Use
  Company Number: None

PATIENT
  Age: 64 Year
  Sex: Female
  Weight: 130.1 kg

DRUGS (9)
  1. COUMADIN [Suspect]
     Indication: ATRIAL FIBRILLATION
     Dosage: CHRONIC
     Route: 048
  2. ASPIRIN [Suspect]
     Indication: ATRIAL FIBRILLATION
     Dosage: CHRONIC
     Route: 048
  3. METOPROLOL [Concomitant]
  4. ALBUTEROL [Concomitant]
  5. VALSARTAN [Concomitant]
  6. LASIX [Concomitant]
  7. CRESTOR [Concomitant]
  8. SPIRONOLACTONE [Concomitant]
  9. ALLOPURINOL [Concomitant]

REACTIONS (9)
  - Haemorrhagic anaemia [None]
  - Melaena [None]
  - Gastrointestinal haemorrhage [None]
  - International normalised ratio increased [None]
  - Renal failure acute [None]
  - Pruritus [None]
  - Swelling [None]
  - Gastric ulcer haemorrhage [None]
  - Haemorrhagic arteriovenous malformation [None]
